FAERS Safety Report 4588932-5 (Version None)
Quarter: 2005Q1

REPORT INFORMATION
  Report Type: 
  Country: None (occurrence: None)
  Receive Date: 20050216
  Receipt Date: 20050131
  Transmission Date: 20050727
  Serious: Yes (Disabling, Other)
  Sender: FDA-Public Use
  Company Number: USA050188902

PATIENT
  Age: 67 Year
  Sex: Male

DRUGS (3)
  1. CIALIS [Suspect]
     Indication: ERECTILE DYSFUNCTION
     Dosage: 10 MG
  2. VITAMINS [Concomitant]
  3. RESTORIL [Concomitant]

REACTIONS (3)
  - CONDITION AGGRAVATED [None]
  - MACULAR DEGENERATION [None]
  - MYOPIA [None]
